FAERS Safety Report 20545825 (Version 2)
Quarter: 2022Q1

REPORT INFORMATION
  Report Type: Spontaneous
  Country: US (occurrence: US)
  Receive Date: 20220303
  Receipt Date: 20220308
  Transmission Date: 20220423
  Serious: No
  Sender: FDA-Public Use
  Company Number: US-NOVARTISTESTPH-NVSC2022US047054

PATIENT
  Age: 40 Year
  Sex: Male
  Weight: 65.77 kg

DRUGS (4)
  1. ADAKVEO [Suspect]
     Active Substance: CRIZANLIZUMAB-TMCA
     Indication: Sickle cell anaemia with crisis
     Dosage: 5 MG/KG, QMO(1/2 THE DOSE OF 5MG PER KILOGRAM)
     Route: 042
     Dates: start: 20210803, end: 20210803
  2. ADAKVEO [Suspect]
     Active Substance: CRIZANLIZUMAB-TMCA
     Dosage: 5 MG/KG, QMO(1/2 THE DOSE OF 5MG PER KILOGRAM)
     Route: 042
     Dates: start: 20210907, end: 20210907
  3. ADAKVEO [Suspect]
     Active Substance: CRIZANLIZUMAB-TMCA
     Dosage: 2.5 MG, QMO
     Route: 042
     Dates: start: 20211102, end: 20211102
  4. ADAKVEO [Suspect]
     Active Substance: CRIZANLIZUMAB-TMCA
     Dosage: 2.5 MG, QMO
     Route: 042
     Dates: start: 20211214, end: 20211214

REACTIONS (2)
  - Infusion related reaction [Recovered/Resolved]
  - Back pain [Recovered/Resolved]

NARRATIVE: CASE EVENT DATE: 20210803
